FAERS Safety Report 6984879-5 (Version None)
Quarter: 2010Q3

REPORT INFORMATION
  Report Type: 
  Country: None (occurrence: None)
  Receive Date: 20100915
  Receipt Date: 20100914
  Transmission Date: 20110219
  Serious: Yes (Death, Other)
  Sender: FDA-Public Use
  Company Number: DE-SANOFI-AVENTIS-2010SA042352

PATIENT
  Age: 70 Year
  Sex: Male
  Weight: 98 kg

DRUGS (10)
  1. MULTAQ [Suspect]
     Indication: ATRIAL FIBRILLATION
     Route: 048
     Dates: start: 20100208, end: 20100712
  2. HYDROCHLOROTHIAZIDE/RAMIPRIL [Concomitant]
     Route: 048
     Dates: start: 20000207, end: 20100712
  3. RAMIPRIL [Concomitant]
     Route: 048
     Dates: start: 20000810, end: 20100712
  4. MARCUMAR [Concomitant]
     Indication: ATRIAL FIBRILLATION
     Dosage: ACCORDING TO INR VALUE
     Route: 048
     Dates: start: 20010122, end: 20100712
  5. SPIRONOLACTONE [Concomitant]
     Route: 048
     Dates: start: 20051027, end: 20100712
  6. SPIRONOLACTONE [Concomitant]
     Route: 048
     Dates: start: 20051027, end: 20100712
  7. SIMVASTATIN [Concomitant]
     Route: 048
     Dates: start: 20060515, end: 20100712
  8. EUTHYROX [Concomitant]
     Indication: PRODUCT USED FOR UNKNOWN INDICATION
     Route: 048
     Dates: end: 20100712
  9. TAMSULOSIN HCL [Concomitant]
     Indication: PRODUCT USED FOR UNKNOWN INDICATION
     Route: 048
     Dates: end: 20100712
  10. PANTOPRAZOLE [Concomitant]
     Indication: PRODUCT USED FOR UNKNOWN INDICATION
     Route: 048
     Dates: end: 20100712

REACTIONS (4)
  - ARRHYTHMIA [None]
  - ATRIAL FIBRILLATION [None]
  - ELECTROCARDIOGRAM QT PROLONGED [None]
  - SUDDEN CARDIAC DEATH [None]
